FAERS Safety Report 10013902 (Version 1)
Quarter: 2014Q1

REPORT INFORMATION
  Report Type: Spontaneous
  Country: US (occurrence: US)
  Receive Date: 20140316
  Receipt Date: 20140316
  Transmission Date: 20141002
  Serious: No
  Sender: FDA-Public Use
  Company Number: US-009507513-1403USA005385

PATIENT
  Sex: Female

DRUGS (3)
  1. NUVARING [Suspect]
     Indication: CONTRACEPTION
     Dosage: UNK
     Route: 067
     Dates: start: 201302
  2. NUVARING [Suspect]
     Indication: MENSTRUATION IRREGULAR
  3. NUVARING [Suspect]
     Indication: IRON DEFICIENCY

REACTIONS (4)
  - Device expulsion [Unknown]
  - Drug dose omission [Unknown]
  - Product quality issue [Unknown]
  - No adverse event [Unknown]
